FAERS Safety Report 4657618-0 (Version None)
Quarter: 2005Q2

REPORT INFORMATION
  Report Type: 
  Country: None (occurrence: None)
  Receive Date: 20050405
  Receipt Date: 20040325
  Transmission Date: 20051028
  Serious: Yes (Other)
  Sender: FDA-Public Use
  Company Number: 2003116617

PATIENT
  Age: 14 Year
  Sex: Male

DRUGS (7)
  1. GEODON [Suspect]
     Indication: AGGRESSION
     Dosage: 60 MG (TID), ORAL
     Route: 048
     Dates: start: 20030401
  2. GEODON [Suspect]
     Indication: AGITATION
     Dosage: 60 MG (TID), ORAL
     Route: 048
     Dates: start: 20030401
  3. GEODON [Suspect]
     Indication: MANIA
     Dosage: 60 MG (TID), ORAL
     Route: 048
     Dates: start: 20030401
  4. GEODON [Suspect]
     Indication: PSYCHOTIC DISORDER
     Dosage: 60 MG (TID), ORAL
     Route: 048
     Dates: start: 20030401
  5. CONCERTA [Suspect]
     Indication: ATTENTION DEFICIT/HYPERACTIVITY DISORDER
     Dosage: 54 MG, ORAL
     Route: 048
     Dates: start: 20020101
  6. VENLAFAXINE HCL [Concomitant]
  7. MELLARIL [Concomitant]

REACTIONS (3)
  - BLOOD PRESSURE INCREASED [None]
  - PNEUMONIA ASPIRATION [None]
  - SEDATION [None]
